FAERS Safety Report 7887875-9 (Version None)
Quarter: 2011Q4

REPORT INFORMATION
  Report Type: 
  Country: None (occurrence: None)
  Receive Date: 20111103
  Receipt Date: 20111103
  Transmission Date: 20120403
  Serious: Yes (Life-Threatening)
  Sender: FDA-Public Use
  Company Number: None

PATIENT
  Age: 83 Year
  Sex: Male
  Weight: 81.646 kg

DRUGS (6)
  1. METFORMIN HCL [Concomitant]
  2. GLYBURIDE [Concomitant]
  3. LEVEMIR [Concomitant]
  4. ACTOS [Suspect]
     Indication: DIABETES MELLITUS
     Dosage: 1 TABLET
     Route: 048
     Dates: start: 20070724, end: 20090323
  5. INSULIN [Concomitant]
  6. HYDROCHLOROTHIAZIDE [Concomitant]
     Route: 048

REACTIONS (2)
  - BLADDER CANCER [None]
  - WEIGHT INCREASED [None]
